FAERS Safety Report 7994365-1 (Version None)
Quarter: 2011Q4

REPORT INFORMATION
  Report Type: 
  Country: None (occurrence: None)
  Receive Date: 20111217
  Receipt Date: 20111217
  Transmission Date: 20120403
  Serious: No
  Sender: FDA-Public Use
  Company Number: None

PATIENT
  Age: 42 Year
  Sex: Male
  Weight: 103.5 kg

DRUGS (1)
  1. CIPRO IN DEXTROSE 5% [Suspect]
     Indication: INFECTION
     Dosage: 400 MG ONCE IV
     Route: 042
     Dates: start: 20110827, end: 20110828

REACTIONS (3)
  - RASH [None]
  - PARAESTHESIA ORAL [None]
  - INJECTION SITE PRURITUS [None]
